FAERS Safety Report 14211483 (Version 2)
Quarter: 2017Q4

REPORT INFORMATION
  Report Type: Other
  Country: JP (occurrence: JP)
  Receive Date: 20171121
  Receipt Date: 20171219
  Transmission Date: 20180321
  Serious: Yes (Hospitalization)
  Sender: FDA-Public Use
  Company Number: JP-LUNDBECK-DKLU2040013

PATIENT
  Age: 52 Year
  Sex: Female

DRUGS (8)
  1. ALEVIATIN [Suspect]
     Active Substance: PHENYTOIN SODIUM
     Indication: EPILEPSY
     Route: 065
  2. MYSTAN [Suspect]
     Active Substance: CLOBAZAM
     Indication: TEMPORAL LOBE EPILEPSY
  3. PHENOBARBITAL. [Suspect]
     Active Substance: PHENOBARBITAL
     Indication: EPILEPSY
     Route: 065
  4. EXCEGRAN [Suspect]
     Active Substance: ZONISAMIDE
     Indication: TEMPORAL LOBE EPILEPSY
     Route: 048
  5. VALPROATE SODIUM. [Suspect]
     Active Substance: VALPROATE SODIUM
     Indication: EPILEPSY
     Route: 065
  6. CARBAMAZEPINE. [Concomitant]
     Active Substance: CARBAMAZEPINE
     Indication: PRODUCT USED FOR UNKNOWN INDICATION
     Route: 065
  7. MYSTAN [Suspect]
     Active Substance: CLOBAZAM
     Indication: EPILEPSY
     Route: 048
  8. ALEVIATIN [Suspect]
     Active Substance: PHENYTOIN SODIUM
     Indication: TEMPORAL LOBE EPILEPSY

REACTIONS (5)
  - Polydipsia [Not Recovered/Not Resolved]
  - White blood cell count decreased [Not Recovered/Not Resolved]
  - Epileptic psychosis [Not Recovered/Not Resolved]
  - Hyponatraemia [Not Recovered/Not Resolved]
  - Drug withdrawal convulsions [Not Recovered/Not Resolved]
